FAERS Safety Report 26219325 (Version 1)
Quarter: 2025Q4

REPORT INFORMATION
  Report Type: Report from Study
  Country: CA (occurrence: CA)
  Receive Date: 20251231
  Receipt Date: 20251231
  Transmission Date: 20260117
  Serious: Yes (Other)
  Sender: CSL BEHRING
  Company Number: CA-BEH-2025229939

PATIENT
  Age: 58 Year
  Sex: Female
  Weight: 100 kg

DRUGS (17)
  1. HIZENTRA [Suspect]
     Active Substance: HUMAN IMMUNOGLOBULIN G
     Indication: Secondary immunodeficiency
     Dosage: 10 G/50ML, QW
     Route: 058
     Dates: start: 20251208
  2. HYDROXYCHLOROQUINE [Concomitant]
     Active Substance: HYDROXYCHLOROQUINE
     Indication: Product used for unknown indication
     Route: 065
  3. VENLAFAXINE [Concomitant]
     Active Substance: VENLAFAXINE HYDROCHLORIDE
     Indication: Product used for unknown indication
     Route: 065
  4. RABEPRAZOLE SODIUM [Concomitant]
     Active Substance: RABEPRAZOLE SODIUM
     Indication: Product used for unknown indication
     Route: 065
  5. ASPIRIN [Concomitant]
     Active Substance: ASPIRIN
  6. HYALURONIC ACID [Concomitant]
     Active Substance: HYALURONIC ACID
  7. VITAMIN C [Concomitant]
     Active Substance: ASCORBIC ACID
  8. CHONDROITIN SULFATE (BOVINE)\GLUCOSAMINE HYDROCHLORIDE [Concomitant]
     Active Substance: CHONDROITIN SULFATE (BOVINE)\GLUCOSAMINE HYDROCHLORIDE
  9. OMEGA 3 [Concomitant]
     Active Substance: CAPSAICIN
  10. AHA [Concomitant]
  11. DIETARY SUPPLEMENT [Concomitant]
     Active Substance: DIETARY SUPPLEMENT
  12. VITAMIN D3 [Concomitant]
     Active Substance: CHOLECALCIFEROL
     Dosage: UNK, PRN
  13. SENOKOT [Concomitant]
     Active Substance: SENNOSIDES
     Dosage: UNK, PRN
  14. BACLOFEN [Concomitant]
     Active Substance: BACLOFEN
  15. PERCOCET [Concomitant]
     Active Substance: ACETAMINOPHEN\OXYCODONE HYDROCHLORIDE
     Dosage: UNK, PRN
  16. ZOPICLONE [Concomitant]
     Active Substance: ZOPICLONE
     Dosage: UNK, PRN
  17. PREDNISONE [Concomitant]
     Active Substance: PREDNISONE

REACTIONS (18)
  - Transfusion reaction [Unknown]
  - Palpitations [Unknown]
  - Fatigue [Unknown]
  - Asthenia [Unknown]
  - Dyspnoea [Unknown]
  - Agitation [Unknown]
  - Infusion site pruritus [Unknown]
  - Infusion site erythema [Unknown]
  - Blood pressure decreased [Unknown]
  - Hyperhidrosis [Unknown]
  - Dizziness [Unknown]
  - Infusion related reaction [Unknown]
  - Presyncope [Unknown]
  - Tremor [Unknown]
  - Infusion site erythema [Unknown]
  - Feeling abnormal [Unknown]
  - Restlessness [Unknown]
  - Brain fog [Unknown]

NARRATIVE: CASE EVENT DATE: 20251201
